FAERS Safety Report 5036685-9 (Version None)
Quarter: 2006Q2

REPORT INFORMATION
  Report Type: 
  Country: None (occurrence: None)
  Receive Date: 20060628
  Receipt Date: 20060228
  Transmission Date: 20061013
  Serious: Yes (Hospitalization)
  Sender: FDA-Public Use
  Company Number: HQWYE105002MAR06

PATIENT
  Sex: Female
  Weight: 62 kg

DRUGS (18)
  1. ENBREL [Suspect]
     Indication: RHEUMATOID ARTHRITIS
     Route: 058
     Dates: start: 20050818, end: 20060217
  2. ENBREL [Suspect]
     Route: 058
     Dates: start: 20060126, end: 20060217
  3. PREDONINE [Suspect]
     Indication: RHEUMATOID ARTHRITIS
     Dosage: UNKNOWN
     Route: 048
  4. RHEUMATREX [Suspect]
     Indication: DRUG USE FOR UNKNOWN INDICATION
     Route: 048
     Dates: start: 20040909, end: 20060101
  5. RHEUMATREX [Suspect]
     Route: 048
     Dates: start: 20060125, end: 20060131
  6. RHEUMATREX [Suspect]
     Route: 048
     Dates: start: 20060201
  7. DECADRON [Concomitant]
     Indication: RHEUMATOID ARTHRITIS
     Dosage: UNKNOWN
     Route: 042
  8. NORVASC [Concomitant]
     Dosage: UNKNOWN
     Route: 048
  9. ACTONEL [Concomitant]
     Dosage: UNKNOWN
     Route: 048
  10. ASPARTATE CALCIUM [Concomitant]
     Dosage: UNKNOWN
     Route: 048
  11. NE SOFT [Concomitant]
     Dosage: UNKNOWN
     Route: 048
  12. OPALMON [Concomitant]
     Dosage: UNKNOWN
     Route: 048
  13. PRANLUKAST [Concomitant]
     Dosage: UNKNOWN
     Route: 048
  14. BLOPRESS [Concomitant]
     Dosage: UNKNOWN
     Route: 048
  15. LASIX [Concomitant]
     Dosage: UNKNOWN
     Route: 048
  16. LOXONIN [Concomitant]
     Indication: RHEUMATOID ARTHRITIS
     Dosage: UNKNOWN
     Route: 048
  17. SELBEX [Concomitant]
     Dosage: UNKNOWN
     Route: 048
  18. ACINON [Concomitant]
     Dosage: UNKNOWN
     Route: 048

REACTIONS (2)
  - ASTHMA [None]
  - BRONCHITIS ACUTE [None]
